FAERS Safety Report 6508163-9 (Version None)
Quarter: 2009Q4

REPORT INFORMATION
  Report Type: 
  Country: None (occurrence: None)
  Receive Date: 20091221
  Receipt Date: 20090109
  Transmission Date: 20100525
  Serious: No
  Sender: FDA-Public Use
  Company Number: US-ASTRAZENECA-2008UW27940

PATIENT
  Age: 57 Year
  Sex: Female
  Weight: 90.7 kg

DRUGS (8)
  1. CRESTOR [Suspect]
     Indication: BLOOD CHOLESTEROL INCREASED
     Route: 048
     Dates: start: 20060601, end: 20061201
  2. CRESTOR [Suspect]
     Route: 048
     Dates: start: 20061201, end: 20070601
  3. CRESTOR [Suspect]
     Route: 048
     Dates: start: 20070601
  4. ZETIA [Suspect]
     Indication: BLOOD TRIGLYCERIDES INCREASED
     Route: 065
     Dates: start: 20071201
  5. NEXIUM [Concomitant]
     Route: 048
  6. WELLBUTRIN [Concomitant]
  7. HYDROCHLOROTHIAZIDE [Concomitant]
  8. VITAMIN D [Concomitant]

REACTIONS (1)
  - MEDICATION RESIDUE [None]
